FAERS Safety Report 9400434 (Version 1)
Quarter: 2013Q3

REPORT INFORMATION
  Report Type: Spontaneous
  Country: GR (occurrence: GR)
  Receive Date: 20130711
  Receipt Date: 20130711
  Transmission Date: 20140515
  Serious: Yes (Hospitalization)
  Sender: FDA-Public Use
  Company Number: 2013P1011306

PATIENT
  Age: 76 Year
  Sex: Female

DRUGS (2)
  1. ISONIAZID [Suspect]
     Indication: LATENT TUBERCULOSIS
  2. GLIMEPIRIDE [Suspect]
     Indication: TYPE 2 DIABETES MELLITUS

REACTIONS (6)
  - Chronic obstructive pulmonary disease [None]
  - Atelectasis [None]
  - Latent tuberculosis [None]
  - Hypoglycaemia [None]
  - Hyperinsulinaemia [None]
  - Inhibitory drug interaction [None]
